FAERS Safety Report 18251886 (Version 1)
Quarter: 2020Q3

REPORT INFORMATION
  Report Type: Spontaneous
  Country: US (occurrence: US)
  Receive Date: 20200910
  Receipt Date: 20200910
  Transmission Date: 20201103
  Serious: No
  Sender: FDA-Public Use
  Company Number: US-AMGEN-USASP2020144456

PATIENT
  Age: 60 Year
  Sex: Female

DRUGS (3)
  1. DICLOFENAC [Concomitant]
     Active Substance: DICLOFENAC
     Dosage: 75 MILLIGRAM
  2. PROLIA [Suspect]
     Active Substance: DENOSUMAB
     Indication: OSTEOPOROSIS
     Dosage: UNK, Q6MO
     Route: 065
     Dates: start: 2017
  3. VIT D [Concomitant]
     Active Substance: VITAMIN D NOS
     Dosage: 5,000 THE MAXIMUM DOSE

REACTIONS (3)
  - Arthralgia [Not Recovered/Not Resolved]
  - Pain in jaw [Not Recovered/Not Resolved]
  - Ear pain [Not Recovered/Not Resolved]

NARRATIVE: CASE EVENT DATE: 2017
